FAERS Safety Report 25709310 (Version 1)
Quarter: 2025Q3

REPORT INFORMATION
  Report Type: Spontaneous
  Country: US (occurrence: US)
  Receive Date: 20250821
  Receipt Date: 20250821
  Transmission Date: 20251020
  Serious: Yes (Other)
  Sender: AMGEN
  Company Number: US-AMGEN-USASP2025160709

PATIENT
  Age: 36 Year
  Sex: Male

DRUGS (7)
  1. PREDNISONE [Suspect]
     Active Substance: PREDNISONE
     Indication: Immunosuppressant drug therapy
     Route: 065
  2. Immunoglobulin [Concomitant]
  3. TOLODODEKIN ALFA [Concomitant]
     Active Substance: TOLODODEKIN ALFA
  4. ALEMTUZUMAB [Concomitant]
     Active Substance: ALEMTUZUMAB
  5. THYMOGLOBULIN [Concomitant]
     Active Substance: LAPINE T-LYMPHOCYTE IMMUNE GLOBULIN
  6. TACROLIMUS [Concomitant]
     Active Substance: TACROLIMUS
  7. MYCOPHENOLATE MOFETIL [Concomitant]
     Active Substance: MYCOPHENOLATE MOFETIL

REACTIONS (2)
  - Delayed graft function [Unknown]
  - Transplant rejection [Unknown]
